FAERS Safety Report 6355834-3 (Version None)
Quarter: 2009Q3

REPORT INFORMATION
  Report Type: 
  Country: None (occurrence: None)
  Receive Date: 20090915
  Receipt Date: 20090908
  Transmission Date: 20100115
  Serious: No
  Sender: FDA-Public Use
  Company Number: US-JNJFOC-20090903317

PATIENT
  Sex: Female
  Weight: 63.96 kg

DRUGS (2)
  1. DURAGESIC-100 [Suspect]
     Route: 062
  2. DURAGESIC-100 [Suspect]
     Indication: PAIN
     Dosage: 100 UG/HR PLUS 25 UG/HR
     Route: 062

REACTIONS (4)
  - DRUG ADMINISTERED AT INAPPROPRIATE SITE [None]
  - DRUG PRESCRIBING ERROR [None]
  - INADEQUATE ANALGESIA [None]
  - INAPPROPRIATE SCHEDULE OF DRUG ADMINISTRATION [None]
